FAERS Safety Report 7555990-5 (Version None)
Quarter: 2011Q2

REPORT INFORMATION
  Report Type: 
  Country: None (occurrence: None)
  Receive Date: 20110620
  Receipt Date: 20110613
  Transmission Date: 20111010
  Serious: Yes (Hospitalization, Other)
  Sender: FDA-Public Use
  Company Number: IN-BRISTOL-MYERS SQUIBB COMPANY-14459770

PATIENT
  Age: 50 Year
  Sex: Male

DRUGS (11)
  1. TORSEMIDE [Concomitant]
     Indication: HYPERTENSION
     Dosage: 10MG FROM 19JAN09. FORM = TAB
     Route: 048
     Dates: start: 20081115
  2. DILZEM [Concomitant]
     Indication: PROPHYLAXIS
     Dosage: FORM:TAB
     Route: 048
     Dates: start: 20081125
  3. PLACEBO [Suspect]
     Indication: THROMBOSIS PROPHYLAXIS
     Route: 048
     Dates: start: 20081126, end: 20090102
  4. METOPROLOL TARTRATE [Concomitant]
     Indication: HYPERTENSION
     Dosage: FORM:TAB
     Route: 048
     Dates: start: 20081115, end: 20081125
  5. DOXOFYLLINE [Concomitant]
     Indication: PRODUCTIVE COUGH
     Dosage: FORM:TAB
     Route: 048
     Dates: start: 20081208, end: 20081213
  6. BROMHEXINE [Concomitant]
     Indication: PRODUCTIVE COUGH
     Dosage: 1DF = 2TSF
     Route: 048
     Dates: start: 20081208, end: 20081213
  7. MULTI-VITAMIN [Concomitant]
     Dates: start: 20081115, end: 20090102
  8. RUPATADINE [Concomitant]
     Indication: PRODUCTIVE COUGH
     Dosage: TAB
     Route: 048
     Dates: start: 20081208, end: 20081213
  9. BECOSULES [Concomitant]
     Dosage: BECOSULE Z I DF=1 CAPSULE
     Route: 048
     Dates: start: 20081115
  10. WARFARIN SODIUM [Suspect]
     Indication: THROMBOSIS PROPHYLAXIS
     Route: 048
     Dates: start: 20081126, end: 20090102
  11. ZINC [Concomitant]
     Dates: start: 20081115, end: 20090102

REACTIONS (2)
  - HEPATITIS ACUTE [None]
  - CARDIAC FAILURE CONGESTIVE [None]
